FAERS Safety Report 14586184 (Version 1)
Quarter: 2018Q1

REPORT INFORMATION
  Report Type: Spontaneous
  Country: DE (occurrence: DE)
  Receive Date: 20180301
  Receipt Date: 20180301
  Transmission Date: 20180509
  Serious: Yes (Other)
  Sender: FDA-Public Use
  Company Number: DE-KRKA, D.D., NOVO MESTO-2042804

PATIENT
  Age: 72 Year
  Sex: Male
  Weight: 77 kg

DRUGS (11)
  1. STALEVO [Suspect]
     Active Substance: CARBIDOPA\ENTACAPONE\LEVODOPA
     Route: 048
  2. MIRTAZAPINE. [Concomitant]
     Active Substance: MIRTAZAPINE
     Route: 048
  3. ENALAPRIL MALEATE. [Suspect]
     Active Substance: ENALAPRIL MALEATE
     Route: 048
  4. HYDROCHLOROTHIAZIDE. [Suspect]
     Active Substance: HYDROCHLOROTHIAZIDE
     Route: 048
  5. MADOPAR [Suspect]
     Active Substance: BENSERAZIDE HYDROCHLORIDE\LEVODOPA
     Route: 048
  6. SIFROL [Concomitant]
     Active Substance: PRAMIPEXOLE
     Route: 048
  7. ACETYLSALICYC ACID [Concomitant]
     Route: 048
  8. DACEPTON [Suspect]
     Active Substance: APOMORPHINE HYDROCHLORIDE
     Route: 058
  9. CIPRALEX [Concomitant]
     Active Substance: ESCITALOPRAM OXALATE
     Route: 048
  10. BISOPROLOL FUMARATE. [Suspect]
     Active Substance: BISOPROLOL FUMARATE
     Route: 048
  11. LEVOCOMP [Concomitant]
     Active Substance: CARBIDOPA\LEVODOPA
     Route: 048

REACTIONS (6)
  - Hyperkinesia [Unknown]
  - Insomnia [Not Recovered/Not Resolved]
  - Nodule [Recovering/Resolving]
  - Fall [Unknown]
  - Akinesia [Not Recovered/Not Resolved]
  - Fatigue [Unknown]

NARRATIVE: CASE EVENT DATE: 20170916
